FAERS Safety Report 14860071 (Version 3)
Quarter: 2018Q2

REPORT INFORMATION
  Report Type: Report from Study
  Country: DE (occurrence: DE)
  Receive Date: 20180508
  Receipt Date: 20180529
  Transmission Date: 20180711
  Serious: Yes (Life-Threatening, Other)
  Sender: FDA-Public Use
  Company Number: DE-PFIZER INC-2018186322

PATIENT
  Age: 75 Year
  Sex: Female
  Weight: 165 kg

DRUGS (52)
  1. SILOMAT (PENTOXYVERINE) [Suspect]
     Active Substance: PENTOXYVERINE
     Indication: COUGH
     Dosage: 20 GTT, DAILY
     Route: 048
     Dates: start: 19981124, end: 19981124
  2. SILOMAT (PENTOXYVERINE) [Suspect]
     Active Substance: PENTOXYVERINE
     Dosage: 20 GTT, DAILY
     Route: 048
     Dates: start: 19981128, end: 19981128
  3. SILOMAT (PENTOXYVERINE) [Suspect]
     Active Substance: PENTOXYVERINE
     Dosage: 20 GTT, DAILY
     Route: 048
     Dates: start: 19981130, end: 19981205
  4. BEPANTHEN (DEXPANTHENOL\DOMIPHEN BROMIDE) [Suspect]
     Active Substance: DEXPANTHENOL\DOMIPHEN BROMIDE
     Dosage: 3 DF, DAILY
     Route: 048
     Dates: start: 19981207
  5. ATROPINE SULFATE. [Concomitant]
     Active Substance: ATROPINE SULFATE
     Indication: ARRHYTHMIA
     Dosage: UNK
     Dates: start: 19981120, end: 19981120
  6. RINGERS SOLUTION [Concomitant]
     Active Substance: CALCIUM CHLORIDE\POTASSIUM CHLORIDE\SODIUM CHLORIDE
     Indication: FLUID REPLACEMENT
     Dosage: UNK
     Dates: start: 19981120, end: 19981120
  7. DEHYDROBENZPERIDOL [Concomitant]
     Active Substance: DROPERIDOL
     Indication: GENERAL ANAESTHESIA
     Dosage: UNK
     Dates: start: 19981120, end: 19981120
  8. DIAZEPAM. [Suspect]
     Active Substance: DIAZEPAM
     Indication: SEDATION
     Dosage: 5 MG, DAILY
     Route: 048
     Dates: start: 19981119, end: 19981119
  9. PHENAEMAL [Suspect]
     Active Substance: PHENOBARBITAL
     Indication: PROPHYLAXIS
     Dosage: 0.1 MG, DAILY
     Route: 048
     Dates: start: 19981001, end: 19981115
  10. CLOBUTINOL HYDROCHLORIDE [Suspect]
     Active Substance: CLOBUTINOL HYDROCHLORIDE
     Indication: COUGH
     Dosage: 20 DF, DAILY
     Route: 048
     Dates: start: 19981124, end: 19981124
  11. POTASSIUM CHLORIDE. [Concomitant]
     Active Substance: POTASSIUM CHLORIDE
     Indication: HYPOKALAEMIA
     Dosage: UNK
     Dates: start: 19981120, end: 19981122
  12. PASPERTIN /00041902/ [Concomitant]
     Active Substance: METOCLOPRAMIDE HYDROCHLORIDE
     Indication: NAUSEA
     Dosage: UNK
     Dates: start: 19981119, end: 19981120
  13. ARISTOCHOL KONZENTRAT [Concomitant]
     Active Substance: DIETARY SUPPLEMENT\HERBALS
     Indication: CONSTIPATION
     Dosage: UNK
     Dates: start: 19981111, end: 19981207
  14. NITRAZEPAM [Suspect]
     Active Substance: NITRAZEPAM
     Dosage: 7.5 MG, DAILY
     Dates: start: 19981119, end: 19981120
  15. CLOBUTINOL HYDROCHLORIDE [Suspect]
     Active Substance: CLOBUTINOL HYDROCHLORIDE
     Dosage: 20 DF, DAILY
     Route: 048
     Dates: start: 19981130, end: 19981130
  16. ADALAT [Concomitant]
     Active Substance: NIFEDIPINE
     Indication: HYPERTENSION
     Dosage: UNK
     Dates: start: 19981121, end: 19981121
  17. ISOFLURANE. [Concomitant]
     Active Substance: ISOFLURANE
     Indication: GENERAL ANAESTHESIA
     Dosage: UNK
     Dates: start: 19981120, end: 19981120
  18. PHENHYDAN [Suspect]
     Active Substance: PHENYTOIN
     Dosage: 100 MG, DAILY
     Route: 065
     Dates: start: 19981120, end: 19981120
  19. CLOBUTINOL HYDROCHLORIDE [Suspect]
     Active Substance: CLOBUTINOL HYDROCHLORIDE
     Dosage: 20 DF, DAILY
     Route: 048
     Dates: start: 19981128, end: 19981128
  20. DEPOT-H-INSULIN [Concomitant]
     Indication: HYPERGLYCAEMIA
     Dosage: UNK
     Dates: start: 19981120, end: 19981120
  21. MIDAZOLAM [Suspect]
     Active Substance: MIDAZOLAM HYDROCHLORIDE
     Dosage: 7.5 MG, DAILY
     Route: 042
     Dates: end: 19981120
  22. DEXAMETHASONE. [Concomitant]
     Active Substance: DEXAMETHASONE
     Indication: PROPHYLAXIS
     Dosage: UNK
     Dates: start: 19981116, end: 19981128
  23. PHENYTOIN SODIUM. [Concomitant]
     Active Substance: PHENYTOIN SODIUM
     Dosage: UNK
     Dates: start: 19981120, end: 19981120
  24. FENTANYL. [Concomitant]
     Active Substance: FENTANYL
     Indication: GENERAL ANAESTHESIA
     Dosage: UNK
     Dates: start: 19981120, end: 19981120
  25. GLUCOSE [Concomitant]
     Active Substance: DEXTROSE
     Indication: FLUID REPLACEMENT
     Dosage: UNK
     Dates: start: 19981120, end: 19981122
  26. DILTIAZEM HYDROCHLORIDE. [Concomitant]
     Active Substance: DILTIAZEM HYDROCHLORIDE
     Indication: CORONARY ARTERY DISEASE
     Dosage: UNK
     Dates: start: 19981110, end: 19981119
  27. SOSTRIL [Concomitant]
     Active Substance: RANITIDINE HYDROCHLORIDE
     Dosage: UNK
     Dates: start: 19981120, end: 19981120
  28. KALINOR-BRAUSETABLETTEN [Concomitant]
     Active Substance: POTASSIUM CARBONATE\POTASSIUM CITRATE
     Indication: HYPOKALAEMIA
     Dosage: UNK
     Dates: start: 19981121, end: 19981122
  29. NOVALGIN (METAMIZOLE SODIUM) [Suspect]
     Active Substance: METAMIZOLE SODIUM
     Indication: PYREXIA
     Dosage: 20 GTT, DAILY
     Route: 048
     Dates: start: 19981202, end: 19981202
  30. BEPANTHEN (DEXPANTHENOL\DOMIPHEN BROMIDE) [Suspect]
     Active Substance: DEXPANTHENOL\DOMIPHEN BROMIDE
     Indication: DRY MOUTH
     Dosage: 3 DF, DAILY
     Route: 048
     Dates: start: 19981121, end: 19981203
  31. CODEINE [Suspect]
     Active Substance: CODEINE
     Indication: COUGH
     Dosage: 15 GTT, DAILY
     Route: 048
     Dates: start: 19981204
  32. FLUIMUCIL [Suspect]
     Active Substance: ACETYLCYSTEINE
     Dosage: 1 DF, DAILY
     Route: 048
     Dates: start: 19981202
  33. FORTECORTIN-MONO [Concomitant]
     Indication: PROPHYLAXIS
     Dosage: UNK
     Dates: start: 19981120, end: 19981121
  34. HEPARIN SODIUM. [Concomitant]
     Active Substance: HEPARIN SODIUM
     Indication: THROMBOSIS PROPHYLAXIS
     Dosage: UNK
     Dates: start: 19981116, end: 19981208
  35. THIOPENTAL [Concomitant]
     Active Substance: THIOPENTAL
     Indication: GENERAL ANAESTHESIA
     Dosage: UNK
     Dates: start: 19981120, end: 19981120
  36. SODIUM CHLORIDE. [Concomitant]
     Active Substance: SODIUM CHLORIDE
     Indication: FLUID REPLACEMENT
     Dosage: UNK
     Dates: start: 19981120, end: 19981122
  37. MEVINACOR [Concomitant]
     Active Substance: LOVASTATIN
     Indication: HYPERCHOLESTEROLAEMIA
     Dosage: UNK
     Dates: start: 19981116, end: 19981208
  38. PHENHYDAN [Suspect]
     Active Substance: PHENYTOIN
     Indication: PROPHYLAXIS
     Dosage: 100 MG, DAILY
     Route: 048
     Dates: start: 19981116, end: 19981119
  39. PHENHYDAN [Suspect]
     Active Substance: PHENYTOIN
     Dosage: 100 MG, DAILY
     Route: 065
     Dates: start: 19981121
  40. NITRAZEPAM [Suspect]
     Active Substance: NITRAZEPAM
     Indication: SEDATION
     Dosage: 7.5 MG, DAILY
     Route: 048
     Dates: start: 19981119, end: 19981119
  41. MIDAZOLAM [Suspect]
     Active Substance: MIDAZOLAM HYDROCHLORIDE
     Indication: SEDATION
     Dosage: 7.5 MG, DAILY
     Route: 042
     Dates: start: 19981119, end: 19981119
  42. HEPARIN SODIUM. [Concomitant]
     Active Substance: HEPARIN SODIUM
     Dosage: UNK
     Dates: start: 19981120, end: 19981122
  43. PANCURONIUM BROMIDE. [Concomitant]
     Active Substance: PANCURONIUM BROMIDE
     Indication: GENERAL ANAESTHESIA
     Dosage: UNK
     Dates: start: 19981120, end: 19981120
  44. GASTROZEPIN [Concomitant]
     Active Substance: PIRENZEPINE HYDROCHLORIDE
     Indication: ULCER
     Dosage: UNK
     Dates: start: 19981120, end: 19981120
  45. VESDIL [Suspect]
     Active Substance: RAMIPRIL
     Indication: HYPERTENSION
     Dosage: 2.5 MG, DAILY
     Route: 048
     Dates: start: 19981110, end: 19981208
  46. ASPIRIN. [Suspect]
     Active Substance: ASPIRIN
     Indication: CORONARY ARTERY DISEASE
     Dosage: 100 MG, DAILY
     Route: 048
     Dates: end: 19981116
  47. MAGALDRATE [Suspect]
     Active Substance: MAGALDRATE
     Indication: ULCER
     Dosage: 1 DF, DAILY
     Route: 048
     Dates: start: 19981128
  48. DOPAMINE HYDROCHLORIDE. [Concomitant]
     Active Substance: DOPAMINE HYDROCHLORIDE
     Dosage: UNK
     Dates: start: 19981120, end: 19981120
  49. RANITIDINE HYDROCHLORIDE. [Concomitant]
     Active Substance: RANITIDINE HYDROCHLORIDE
     Indication: ULCER
     Dosage: UNK
     Dates: start: 19981116, end: 19981119
  50. RANITIDINE HYDROCHLORIDE. [Concomitant]
     Active Substance: RANITIDINE HYDROCHLORIDE
     Dosage: UNK
     Dates: start: 19981120, end: 19981120
  51. EBRANTIL [Concomitant]
     Active Substance: URAPIDIL
     Indication: HYPERTENSION
     Dosage: UNK
     Dates: start: 19981120, end: 19981120
  52. SUFENTA [Concomitant]
     Active Substance: SUFENTANIL CITRATE
     Indication: GENERAL ANAESTHESIA
     Dosage: UNK
     Dates: start: 19981120, end: 19981120

REACTIONS (2)
  - Toxic epidermal necrolysis [Recovered/Resolved]
  - Stevens-Johnson syndrome [Recovering/Resolving]

NARRATIVE: CASE EVENT DATE: 19981207
